FAERS Safety Report 8761715 (Version 2)
Quarter: 2012Q4

REPORT INFORMATION
  Report Type: Spontaneous
  Country: US (occurrence: None)
  Receive Date: 20120821
  Receipt Date: 20120910
  Transmission Date: 20130627
  Serious: Yes (Other)
  Sender: FDA-Public Use
  Company Number: ACO_31458_2012

PATIENT
  Age: 59 Year
  Sex: Female
  Weight: 63.5 kg

DRUGS (7)
  1. AMPYRA [Suspect]
     Indication: GAIT DISTURBANCE
     Dosage: (every 12 hours)
     Dates: start: 20120622, end: 20120806
  2. TYSABRI (NATALIZUMAB) [Concomitant]
  3. BACLOFEN (BACLOFEN) (BACLOFEN) [Concomitant]
  4. NALTREXONE (NALTREXONE HYDROCHLORIDE) [Concomitant]
  5. LEVOTHYROXINE (LEVOTHYROXINE SODIUM) [Concomitant]
  6. LEXAPRO (ESCITALOPRAM OXALATE) [Concomitant]
  7. MULTIVITAMIN (VITAMINS NOS) [Concomitant]

REACTIONS (1)
  - Convulsion [None]
